FAERS Safety Report 19434013 (Version 2)
Quarter: 2021Q3

REPORT INFORMATION
  Report Type: Spontaneous
  Country: US (occurrence: US)
  Receive Date: 20210618
  Receipt Date: 20210722
  Transmission Date: 20211014
  Serious: No
  Sender: FDA-Public Use
  Company Number: US-PFIZER INC-2021318401

PATIENT
  Age: 49 Year
  Sex: Female
  Weight: 74.83 kg

DRUGS (11)
  1. ASPIRIN (E.C.) [Concomitant]
     Active Substance: ASPIRIN
     Dosage: UNK
  2. SODIUM CHLORIDE. [Concomitant]
     Active Substance: SODIUM CHLORIDE
     Dosage: UNK
  3. TOPROL XL [Concomitant]
     Active Substance: METOPROLOL SUCCINATE
     Dosage: UNK, ER 24H
  4. INLYTA [Suspect]
     Active Substance: AXITINIB
     Indication: RENAL CANCER
     Dosage: 5 MG, 2X/DAY (TAKE 1 TABLET ORALLY)
     Route: 048
     Dates: start: 202012
  5. GABAPENTIN. [Concomitant]
     Active Substance: GABAPENTIN
     Dosage: UNK
  6. PREDNISONE. [Concomitant]
     Active Substance: PREDNISONE
     Dosage: UNK MG
  7. REMERON [Concomitant]
     Active Substance: MIRTAZAPINE
     Dosage: UNK, RAPIDS
  8. METHADONE HCL [Concomitant]
     Active Substance: METHADONE HYDROCHLORIDE
     Dosage: UNK
  9. REGLAN [Concomitant]
     Active Substance: METOCLOPRAMIDE HYDROCHLORIDE
     Dosage: UNK MG
  10. SENNA?S [DOCUSATE SODIUM;SENNOSIDE A+B] [Concomitant]
     Dosage: 8.6 MG?50 MG
  11. B?COMPLEX [VITAMIN B COMPLEX] [Concomitant]
     Dosage: UNK

REACTIONS (1)
  - Alopecia [Unknown]
